FAERS Safety Report 5823660-7 (Version None)
Quarter: 2008Q3

REPORT INFORMATION
  Report Type: 
  Country: None (occurrence: None)
  Receive Date: 20080725
  Receipt Date: 20080721
  Transmission Date: 20090109
  Serious: Yes (Life-Threatening)
  Sender: FDA-Public Use
  Company Number: FR-ASTRAZENECA-2008CG01086

PATIENT
  Age: 16335 Day
  Sex: Female

DRUGS (5)
  1. DIPRIVAN [Suspect]
     Indication: INDUCTION OF ANAESTHESIA
     Route: 042
     Dates: start: 20080417, end: 20080417
  2. XYLOCAINE [Suspect]
     Indication: INDUCTION OF ANAESTHESIA
     Route: 042
     Dates: start: 20080417, end: 20080417
  3. NIMBEX [Suspect]
     Route: 042
     Dates: start: 20080417, end: 20080417
  4. CELOCURIN [Suspect]
     Route: 042
     Dates: start: 20080417, end: 20080417
  5. SUFENTA [Suspect]
     Route: 042
     Dates: start: 20080417, end: 20080417

REACTIONS (1)
  - SHOCK [None]
